FAERS Safety Report 15230362 (Version 3)
Quarter: 2018Q3

REPORT INFORMATION
  Report Type: Report from Study
  Country: None (occurrence: AT)
  Receive Date: 20180802
  Receipt Date: 20180817
  Transmission Date: 20181010
  Serious: Yes (Hospitalization)
  Sender: FDA-Public Use
  Company Number: AT-ABBVIE-18K-009-2412523-00

PATIENT
  Age: 78 Year
  Sex: Female

DRUGS (5)
  1. DUODOPA [Suspect]
     Active Substance: CARBIDOPA\LEVODOPA
     Dosage: 16 H THERAPY: ?MD: 8ML?CR DAYTIME: 3ML/H?ED: 3ML
     Route: 050
     Dates: start: 201807
  2. DUODOPA [Suspect]
     Active Substance: CARBIDOPA\LEVODOPA
     Dosage: 16H THERAPY:?MD: 8ML, CR DAYTIME 4ML/H, ED: 2ML
     Route: 050
     Dates: start: 201808
  3. DUODOPA [Suspect]
     Active Substance: CARBIDOPA\LEVODOPA
     Indication: PARKINSON^S DISEASE
     Dosage: 16 HOURS THERAPY
     Route: 050
     Dates: end: 201807
  4. DUODOPA [Suspect]
     Active Substance: CARBIDOPA\LEVODOPA
     Dosage: 16H THERAPY:?MD: 8ML, CR DAYTIME: 3.5ML/H, ED: 2ML
     Route: 050
     Dates: end: 201808
  5. DUODOPA [Suspect]
     Active Substance: CARBIDOPA\LEVODOPA
     Route: 050

REACTIONS (6)
  - Intentional product misuse [Unknown]
  - Mental disorder [Not Recovered/Not Resolved]
  - Medical device change [Not Recovered/Not Resolved]
  - On and off phenomenon [Not Recovered/Not Resolved]
  - Fall [Recovering/Resolving]
  - On and off phenomenon [Recovered/Resolved]

NARRATIVE: CASE EVENT DATE: 20180705
